FAERS Safety Report 7434387-2 (Version None)
Quarter: 2011Q2

REPORT INFORMATION
  Report Type: 
  Country: None (occurrence: None)
  Receive Date: 20110425
  Receipt Date: 20110413
  Transmission Date: 20111010
  Serious: Yes (Hospitalization)
  Sender: FDA-Public Use
  Company Number: PHHY2009JP27200

PATIENT

DRUGS (2)
  1. SYMMETREL [Suspect]
     Indication: DEMENTIA
     Dosage: 150 MG, QD
     Route: 048
  2. PARLODEL [Suspect]
     Dosage: UNK

REACTIONS (4)
  - CONDITION AGGRAVATED [None]
  - RENAL IMPAIRMENT [None]
  - MOANING [None]
  - DRUG LEVEL INCREASED [None]
